FAERS Safety Report 21206929 (Version 3)
Quarter: 2022Q3

REPORT INFORMATION
  Report Type: Spontaneous
  Country: US (occurrence: US)
  Receive Date: 20220812
  Receipt Date: 20220829
  Transmission Date: 20221027
  Serious: Yes (Other)
  Sender: FDA-Public Use
  Company Number: US-PFIZER INC-PV202200038642

PATIENT
  Age: 52 Year
  Sex: Male
  Weight: 112.03 kg

DRUGS (34)
  1. AMOXICILLIN [Suspect]
     Active Substance: AMOXICILLIN
     Indication: Babesiosis
     Dosage: 875 MG, 2X/DAY
     Route: 048
  2. AZITHROMYCIN [Suspect]
     Active Substance: AZITHROMYCIN
     Indication: Lyme disease
     Dosage: 250 MG, 2X/DAY
     Route: 042
  3. CLINDAMYCIN HYDROCHLORIDE [Suspect]
     Active Substance: CLINDAMYCIN HYDROCHLORIDE
     Indication: Babesiosis
     Dosage: UNK
     Route: 048
  4. DOXYCYCLINE HYCLATE [Suspect]
     Active Substance: DOXYCYCLINE HYCLATE
     Indication: Babesiosis
     Dosage: UNK
     Route: 042
  5. LEVOFLOXACIN [Suspect]
     Active Substance: LEVOFLOXACIN
     Indication: Babesiosis
     Dosage: UNK
  6. VANCOMYCIN HYDROCHLORIDE [Suspect]
     Active Substance: VANCOMYCIN HYDROCHLORIDE
     Indication: Babesiosis
     Dosage: UNK
     Route: 042
  7. ZITHROMAX [Suspect]
     Active Substance: AZITHROMYCIN DIHYDRATE
     Dosage: UNK
  8. DAPSONE [Suspect]
     Active Substance: DAPSONE
     Indication: Babesiosis
     Dosage: 50 MG, 2 DAYS
  9. DAPSONE [Suspect]
     Active Substance: DAPSONE
     Dosage: 50 MG 1 DAYS
  10. DISULFIRAM [Suspect]
     Active Substance: DISULFIRAM
     Indication: Lyme disease
     Dosage: 250 MG 12 HOURS
  11. ATOVAQUONE [Suspect]
     Active Substance: ATOVAQUONE
     Indication: Babesiosis
     Dosage: UNK
     Route: 048
  12. CEFTRIAXONE [Suspect]
     Active Substance: CEFTRIAXONE
     Indication: Babesiosis
     Dosage: UNK
     Route: 042
  13. TINIDAZOLE [Suspect]
     Active Substance: TINIDAZOLE
     Indication: Babesiosis
     Dosage: UNK
  14. ATOVAQUONE\PROGUANIL HYDROCHLORIDE [Suspect]
     Active Substance: ATOVAQUONE\PROGUANIL HYDROCHLORIDE
     Indication: Babesiosis
     Dosage: UNK
     Route: 048
  15. NYSTATIN [Suspect]
     Active Substance: NYSTATIN
     Indication: Lyme disease
     Dosage: 500000 IU, 2X/DAY
     Route: 048
  16. CEFDINIR [Suspect]
     Active Substance: CEFDINIR
     Indication: Lyme disease
     Dosage: 300 MG, 2X/DAY
     Route: 048
  17. PROBENECID [Suspect]
     Active Substance: PROBENECID
     Indication: Lyme disease
     Dosage: 500 MG, 2X/DAY
  18. MINOCYCLINE [Suspect]
     Active Substance: MINOCYCLINE HYDROCHLORIDE
     Indication: Babesiosis
     Dosage: 100 MG, 2X/DAY
     Route: 048
  19. RIFAMPIN [Suspect]
     Active Substance: RIFAMPIN
     Indication: Babesiosis
     Dosage: 300 MG, 2X/DAY
  20. CEFUROXIME AXETIL [Suspect]
     Active Substance: CEFUROXIME AXETIL
     Indication: Babesiosis
     Dosage: 500 MG 12 HOURS
  21. HYDROXYCHLOROQUINE [Suspect]
     Active Substance: HYDROXYCHLOROQUINE
     Indication: Babesiosis
     Dosage: 200 MG 12 HOURS
  22. PROGUANIL HYDROCHLORIDE [Suspect]
     Active Substance: PROGUANIL HYDROCHLORIDE
     Dosage: UNK
  23. SULFAMETHOXAZOLE\TRIMETHOPRIM [Suspect]
     Active Substance: SULFAMETHOXAZOLE\TRIMETHOPRIM
     Dosage: UNK
  24. CLARITHROMYCIN [Suspect]
     Active Substance: CLARITHROMYCIN
     Dosage: UNK
  25. BACTRIM DS [Suspect]
     Active Substance: SULFAMETHOXAZOLE\TRIMETHOPRIM
     Dosage: UNK
  26. WARFARIN [Concomitant]
     Active Substance: WARFARIN
     Indication: Pulmonary embolism
     Dosage: UNK
  27. VALSARTAN [Concomitant]
     Active Substance: VALSARTAN
     Indication: Hypertension
     Dosage: 160 MG, 1X/DAY
  28. VALSARTAN [Concomitant]
     Active Substance: VALSARTAN
     Indication: Hyperlipidaemia
  29. FENOFIBRATE [Concomitant]
     Active Substance: FENOFIBRATE
     Dosage: 145 MG, 1X/DAY
  30. AMLODIPINE [Concomitant]
     Active Substance: AMLODIPINE BESYLATE
     Indication: Hypertension
     Dosage: 5 MG, 1X/DAY
  31. AMLODIPINE [Concomitant]
     Active Substance: AMLODIPINE BESYLATE
     Indication: Hyperlipidaemia
  32. TRAZODONE [Concomitant]
     Active Substance: TRAZODONE HYDROCHLORIDE
     Indication: Depression
     Dosage: 200 MG, 1X/DAY (BEDTIME)
  33. TRAZODONE [Concomitant]
     Active Substance: TRAZODONE HYDROCHLORIDE
     Indication: Insomnia
  34. HYDROCORTISONE [Concomitant]
     Active Substance: HYDROCORTISONE
     Indication: Adrenal disorder
     Dosage: 7.5 MG, DAILY (5 GM IN THE MORNING, 2.5 MG AT 2PM)

REACTIONS (11)
  - Lyme disease [Unknown]
  - Disease recurrence [Unknown]
  - Pulmonary embolism [Unknown]
  - Condition aggravated [Unknown]
  - Drug ineffective [Unknown]
  - Tachyarrhythmia [Unknown]
  - Blood testosterone decreased [Unknown]
  - Hypoglycaemia [Unknown]
  - Pneumonia [Unknown]
  - Metabolic syndrome [Unknown]
  - Jarisch-Herxheimer reaction [Unknown]
